FAERS Safety Report 4648785-3 (Version None)
Quarter: 2005Q2

REPORT INFORMATION
  Report Type: 
  Country: None (occurrence: None)
  Receive Date: 20050429
  Receipt Date: 20050422
  Transmission Date: 20051028
  Serious: Yes (Disabling)
  Sender: FDA-Public Use
  Company Number: US-MERCK-0504USA04117

PATIENT
  Age: 69 Year
  Sex: Female

DRUGS (4)
  1. ZOCOR [Suspect]
     Indication: BLOOD CHOLESTEROL INCREASED
     Route: 048
     Dates: start: 20050201
  2. ATENOLOL [Concomitant]
     Route: 065
  3. IMIPRAMINE HYDROCHLORIDE [Concomitant]
     Route: 065
  4. ACTONEL [Concomitant]
     Route: 065

REACTIONS (2)
  - ARTHRALGIA [None]
  - PAIN IN EXTREMITY [None]
